FAERS Safety Report 4978826-5 (Version None)
Quarter: 2006Q2

REPORT INFORMATION
  Report Type: 
  Country: None (occurrence: None)
  Receive Date: 20060417
  Receipt Date: 20060403
  Transmission Date: 20061013
  Serious: Yes (Life-Threatening)
  Sender: FDA-Public Use
  Company Number: 06H-229-0307021-00

PATIENT
  Age: 68 Year
  Sex: Female

DRUGS (2)
  1. MORPHINE SULFATE [Suspect]
     Indication: ANALGESIC THERAPY
     Dosage: 50 MG,
  2. CODEINE PHOSPHATE INJECTION (CODEINE PHOSPHATE) (CODEINE PHOSPHATE) [Suspect]
     Indication: ANALGESIC THERAPY
     Dosage: 76 MG,

REACTIONS (3)
  - RESPIRATORY RATE DECREASED [None]
  - SOMNOLENCE [None]
  - THERAPEUTIC AGENT TOXICITY [None]
